FAERS Safety Report 10745194 (Version 1)
Quarter: 2015Q1

REPORT INFORMATION
  Report Type: Spontaneous
  Country: US (occurrence: None)
  Receive Date: 20150126
  Receipt Date: 20150126
  Transmission Date: 20150721
  Serious: Yes (Hospitalization)
  Sender: FDA-Public Use
  Company Number: None

PATIENT
  Age: 67 Year
  Sex: Female
  Weight: 120 kg

DRUGS (32)
  1. PROTOCOL (CALCIUM REPLACEMENT) [Concomitant]
  2. METOPROLOL (TOPROL XL) [Concomitant]
  3. MORPHINE [Concomitant]
     Active Substance: MORPHINE
  4. ENOXAPARIN [Concomitant]
     Active Substance: ENOXAPARIN
  5. PROTOCOL (PHOSPHORUS REPLACEMENT) [Concomitant]
  6. DOCUSATE-SENNA (SENOKOT S) [Concomitant]
  7. ALBUTEROL (ALBUTEROL HFA) [Concomitant]
  8. CARISOPRODOL. [Concomitant]
     Active Substance: CARISOPRODOL
  9. NALOXONE (NARCAN) [Concomitant]
  10. OXYCODONE [Concomitant]
     Active Substance: OXYCODONE
  11. METHADONE [Concomitant]
     Active Substance: METHADONE HYDROCHLORIDE
  12. PROTOCOL (MAGNESIUM REPLACEMENT) [Concomitant]
  13. DARIFENACIN (ENABLEX) [Concomitant]
  14. DOCUSATE (COLACE) [Concomitant]
  15. FLUTICASONE-SALMETEROL (ADVAIR HFA) [Concomitant]
  16. MULTIVITAMIN [Concomitant]
     Active Substance: VITAMINS
  17. ALLANTOIN/CAMPHOR/PHENOL TOPICAL (BLISTEX) [Concomitant]
  18. BISACODYL. [Concomitant]
     Active Substance: BISACODYL
  19. CEFTAROLINE [Suspect]
     Active Substance: CEFTAROLINE
     Indication: CELLULITIS STAPHYLOCOCCAL
     Route: 042
     Dates: start: 20141227, end: 20150122
  20. CEFTAROLINE [Suspect]
     Active Substance: CEFTAROLINE
     Route: 042
     Dates: start: 20141227, end: 20150122
  21. LACOSAMIDE (VIMPAT) [Concomitant]
  22. APAP/BUTALBITAL/CAFFEINE (FIORICET) [Concomitant]
  23. ALPRAZOLAM. [Concomitant]
     Active Substance: ALPRAZOLAM
  24. PROTOCOL (POTASSIUM REPLACEMENT) [Concomitant]
  25. FERROUS SULFATE [Concomitant]
     Active Substance: FERROUS SULFATE\FERROUS SULFATE, DRIED
  26. AL HYDROXIDE/MG HYDROXIDE/SIMETHICONE (MYLANTA) [Concomitant]
  27. ACETAMINOPHEN. [Concomitant]
     Active Substance: ACETAMINOPHEN
  28. ARIPIPRAZOLE (ABILIFY) [Concomitant]
  29. CEFTAROLINE + SODIUM CHLORIDE [Concomitant]
  30. DULOXETINE (CYMBALTA) [Concomitant]
  31. PANTOPRAZOLE [Concomitant]
     Active Substance: PANTOPRAZOLE SODIUM
  32. ONDANSETRON (ZOFRAN) [Concomitant]

REACTIONS (3)
  - Throat irritation [None]
  - Sinus congestion [None]
  - Neutrophil count decreased [None]

NARRATIVE: CASE EVENT DATE: 20150122
